FAERS Safety Report 4954027-1 (Version None)
Quarter: 2006Q1

REPORT INFORMATION
  Report Type: 
  Country: None (occurrence: None)
  Receive Date: 20060321
  Receipt Date: 20060316
  Transmission Date: 20060701
  Serious: Yes (Hospitalization)
  Sender: FDA-Public Use
  Company Number: 2006-139874-NL

PATIENT
  Age: 61 Year
  Sex: Female

DRUGS (4)
  1. PANCURONIUM BROMIDE [Suspect]
     Indication: ANAESTHESIA
     Dosage: INTRAVENOUS (NOS)
     Route: 042
     Dates: start: 20060214, end: 20060214
  2. THIOPENTAL SODIUM [Suspect]
     Indication: ANAESTHESIA
     Dosage: INTRAVENOUS (NOS)
     Route: 042
     Dates: start: 20060214, end: 20060214
  3. CEFAZOLIN [Suspect]
     Indication: ANTIBIOTIC PROPHYLAXIS
     Dosage: PARENTERAL
     Route: 051
  4. FENTANYL [Suspect]
     Indication: ANALGESIC EFFECT
     Dosage: INTRAVENOUS (NOS)
     Route: 042
     Dates: start: 20060214, end: 20060214

REACTIONS (1)
  - URTICARIA [None]
